FAERS Safety Report 24857976 (Version 1)
Quarter: 2025Q1

REPORT INFORMATION
  Report Type: Spontaneous
  Country: US (occurrence: US)
  Receive Date: 20250117
  Receipt Date: 20250117
  Transmission Date: 20250408
  Serious: No
  Sender: SANOFI AVENTIS
  Company Number: US-SA-2025SA014862

PATIENT
  Sex: Male
  Weight: 119.09 kg

DRUGS (1)
  1. KEVZARA [Suspect]
     Active Substance: SARILUMAB
     Indication: Polymyalgia rheumatica
     Dosage: 200 MG, QOW
     Route: 058
     Dates: start: 20241125

REACTIONS (4)
  - Diarrhoea [Not Recovered/Not Resolved]
  - Illness [Not Recovered/Not Resolved]
  - Injection site pain [Recovered/Resolved]
  - Injection site erythema [Recovered/Resolved]
